FAERS Safety Report 9170929 (Version 2)
Quarter: 2013Q1

REPORT INFORMATION
  Report Type: Spontaneous
  Country: GB (occurrence: None)
  Receive Date: 20130311
  Receipt Date: 20130311
  Transmission Date: 20140127
  Serious: Yes (Hospitalization, Disabling)
  Sender: FDA-Public Use
  Company Number: SYM-2013-01462

PATIENT
  Sex: Female

DRUGS (2)
  1. METRONIDAZOLE (METRONIDAZOLE) (TABLETS) (METRONIDAZOLE) [Suspect]
     Indication: SKIN ULCER
     Dates: start: 20121019
  2. GABAPENTIN (GABAPENTIN) (GABAPENTIN) [Concomitant]

REACTIONS (11)
  - Paraesthesia [None]
  - Hypoaesthesia [None]
  - Head discomfort [None]
  - Hearing impaired [None]
  - Musculoskeletal disorder [None]
  - Feeling abnormal [None]
  - Peripheral coldness [None]
  - Activities of daily living impaired [None]
  - Drug ineffective [None]
  - Hypertension [None]
  - Transient ischaemic attack [None]
